FAERS Safety Report 20209056 (Version 1)
Quarter: 2021Q4

REPORT INFORMATION
  Report Type: Spontaneous
  Country: US (occurrence: None)
  Receive Date: 20211220
  Receipt Date: 20211220
  Transmission Date: 20220304
  Serious: No
  Sender: FDA-Public Use
  Company Number: 2021A867449

PATIENT
  Sex: Male

DRUGS (2)
  1. CRESTOR [Suspect]
     Active Substance: ROSUVASTATIN CALCIUM
     Indication: Stent placement
     Dosage: 40.0MG UNKNOWN
     Route: 048
     Dates: start: 20210720
  2. CRESTOR [Suspect]
     Active Substance: ROSUVASTATIN CALCIUM
     Indication: Stent placement
     Dosage: 20.0MG UNKNOWN
     Route: 048
     Dates: start: 20211111

REACTIONS (5)
  - Enzyme level decreased [Unknown]
  - Hepatic enzyme increased [Unknown]
  - Intentional product use issue [Unknown]
  - Off label use [Unknown]
  - Intentional product misuse [Unknown]
